FAERS Safety Report 19007329 (Version 2)
Quarter: 2022Q4

REPORT INFORMATION
  Report Type: Report from Study
  Country: NL (occurrence: None)
  Receive Date: 20210315
  Receipt Date: 20221227
  Transmission Date: 20230113
  Serious: Yes (Hospitalization)
  Sender: FDA-Public Use
  Company Number: NL-ROCHE-2784391

PATIENT
  Age: 56 Year
  Sex: Male

DRUGS (2)
  1. TRASTUZUMAB [Suspect]
     Active Substance: TRASTUZUMAB
     Indication: Colorectal cancer
     Dosage: DATE OF MOST RECENT DOSE: 23/FEB/2021
     Route: 041
     Dates: start: 20210223
  2. PERTUZUMAB [Suspect]
     Active Substance: PERTUZUMAB
     Indication: Colorectal cancer
     Dosage: DATE OF MOST RECENT DOSE: 23/FEB/2021
     Route: 042
     Dates: start: 20210223

REACTIONS (1)
  - Dermatitis acneiform [Recovered/Resolved]

NARRATIVE: CASE EVENT DATE: 20210302
